FAERS Safety Report 4341847-X (Version None)
Quarter: 2004Q2

REPORT INFORMATION
  Report Type: 
  Country: None (occurrence: None)
  Receive Date: 20040415
  Receipt Date: 20040401
  Transmission Date: 20050107
  Serious: Yes (Life-Threatening, Hospitalization)
  Sender: FDA-Public Use
  Company Number: 2004-BP-02439NB

PATIENT
  Age: 80 Year
  Sex: Female

DRUGS (7)
  1. BI-SIFROL TABLETS (PRAMIPEXOLE DIHYDROCHLORIDE) (TA) [Suspect]
     Indication: PARKINSON'S DISEASE
     Dosage: 1 MG PO
     Route: 048
     Dates: start: 20040308, end: 20040312
  2. MENESIT (SINEMET /NET/) (TA) [Concomitant]
  3. NAUZELIN (DOMPERIDONE) (TA) [Concomitant]
  4. GASTER D (TA) [Concomitant]
  5. PURSENNID (TA) [Concomitant]
  6. LENDORMIN (BROTIZOLAM) (TA) [Concomitant]
  7. MEVALOTIN (TA) [Concomitant]

REACTIONS (3)
  - ILEUS [None]
  - PNEUMONIA [None]
  - VOMITING [None]
